FAERS Safety Report 6335575-9 (Version None)
Quarter: 2009Q3

REPORT INFORMATION
  Report Type: 
  Country: None (occurrence: None)
  Receive Date: 20090831
  Receipt Date: 20090820
  Transmission Date: 20100115
  Serious: Yes (Hospitalization)
  Sender: FDA-Public Use
  Company Number: US-WATSON-2009-03962

PATIENT
  Sex: Male
  Weight: 79.365 kg

DRUGS (5)
  1. FENTANYL-100 [Suspect]
     Indication: CANCER PAIN
     Dosage: 1 PATCH, Q 72 HRS (Q 3 DAYS)
     Route: 062
     Dates: start: 20090513, end: 20090516
  2. FENTANYL-100 [Suspect]
     Indication: ORAL SURGERY
  3. FENTANYL-50 [Suspect]
     Indication: CANCER PAIN
     Dosage: 1 PATCH, Q 72 HRS
     Route: 062
     Dates: start: 20090401, end: 20090516
  4. GLYBURIDE [Concomitant]
     Indication: DIABETES MELLITUS
     Dosage: 1 TABLET, DAILY
     Route: 065
  5. LISINOPRIL [Concomitant]
     Indication: HYPERTENSION
     Dosage: 1 TABLET, DAILY
     Route: 065

REACTIONS (4)
  - BRAIN HYPOXIA [None]
  - LOSS OF CONSCIOUSNESS [None]
  - OVERDOSE [None]
  - RESPIRATORY DEPRESSION [None]
